FAERS Safety Report 16312564 (Version 2)
Quarter: 2019Q2

REPORT INFORMATION
  Report Type: Spontaneous
  Country: AU (occurrence: AU)
  Receive Date: 20190515
  Receipt Date: 20190531
  Transmission Date: 20190711
  Serious: Yes (Other)
  Sender: FDA-Public Use
  Company Number: AU-B.I. PHARMACEUTICALS,INC./RIDGEFIELD-2019-BI-021762

PATIENT
  Age: 66 Year
  Sex: Male

DRUGS (1)
  1. JARDIANCE [Suspect]
     Active Substance: EMPAGLIFLOZIN
     Indication: PRODUCT USED FOR UNKNOWN INDICATION
     Dosage: START DATE: APPROX 3 MONTHS AGO
     Route: 048

REACTIONS (8)
  - Malaise [Unknown]
  - Vomiting [Unknown]
  - Lethargy [Unknown]
  - Diabetic ketoacidosis [Recovered/Resolved]
  - Polyuria [Unknown]
  - Diarrhoea [Unknown]
  - Blood glucose increased [Unknown]
  - Nocturia [Unknown]

NARRATIVE: CASE EVENT DATE: 20181007
